FAERS Safety Report 17422444 (Version 1)
Quarter: 2020Q1

REPORT INFORMATION
  Report Type: Other
  Country: RU (occurrence: RU)
  Receive Date: 20200215
  Receipt Date: 20200215
  Transmission Date: 20200409
  Serious: Yes (Other)
  Sender: FDA-Public Use
  Company Number: RU-GLENMARK PHARMACEUTICALS-2020GMK046068

PATIENT

DRUGS (5)
  1. OTIPAX                             /01006301/ [Concomitant]
     Indication: EAR INFECTION
     Dosage: UNK
     Route: 014
     Dates: start: 20190702, end: 20190709
  2. SINUPRET                           /00578801/ [Concomitant]
     Active Substance: ASCORBIC ACID\HERBALS
     Indication: SINUSITIS
     Dosage: UNK
     Route: 048
     Dates: start: 20190702, end: 20190710
  3. ISOFRA [Concomitant]
     Active Substance: FRAMYCETIN SULFATE
     Indication: SINUSITIS
     Dosage: UNK (IN THE SINUSES OF NOSE)
     Route: 045
     Dates: start: 20190702, end: 20190709
  4. MOMATE [Concomitant]
     Indication: SINUSITIS
     Dosage: UNK (INTO THE SINUSES)
     Route: 045
     Dates: start: 20190702, end: 20190710
  5. LEVOFLOXACIN. [Suspect]
     Active Substance: LEVOFLOXACIN
     Indication: ACUTE SINUSITIS
     Dosage: UNK
     Route: 048
     Dates: start: 20190702, end: 20190702

REACTIONS (5)
  - Oedema mucosal [Recovered/Resolved]
  - Pruritus [Recovered/Resolved]
  - Lip swelling [Recovered/Resolved]
  - Skin maceration [Recovered/Resolved]
  - Oedema [Recovered/Resolved]

NARRATIVE: CASE EVENT DATE: 20180702
